FAERS Safety Report 9370867 (Version 1)
Quarter: 2013Q2

REPORT INFORMATION
  Report Type: Report from Study
  Country: CA (occurrence: CA)
  Receive Date: 20130626
  Receipt Date: 20130626
  Transmission Date: 20140414
  Serious: Yes (Death)
  Sender: FDA-Public Use
  Company Number: CA-ROCHE-1133786

PATIENT
  Age: 28 Year
  Sex: Male
  Weight: 106 kg

DRUGS (6)
  1. AVASTIN [Suspect]
     Indication: GLIOBLASTOMA
     Route: 042
     Dates: start: 20120419
  2. AVASTIN [Suspect]
     Route: 042
     Dates: start: 20120614, end: 20120727
  3. DECADRON [Concomitant]
  4. VALPROIC ACID [Concomitant]
  5. CLOBAZAM [Concomitant]
  6. ZANTAC [Concomitant]

REACTIONS (4)
  - Death [Fatal]
  - Abscess [Recovering/Resolving]
  - Poor venous access [Recovered/Resolved]
  - Disease progression [Not Recovered/Not Resolved]
